FAERS Safety Report 6175319-7 (Version None)
Quarter: 2009Q2

REPORT INFORMATION
  Report Type: 
  Country: None (occurrence: None)
  Receive Date: 20090429
  Receipt Date: 20090415
  Transmission Date: 20091009
  Serious: Yes (Hospitalization)
  Sender: FDA-Public Use
  Company Number: KV200900453

PATIENT
  Sex: Female

DRUGS (1)
  1. MORPHINE SULFATE [Suspect]
     Indication: DRUG USE FOR UNKNOWN INDICATION
     Dosage: ORAL
     Route: 048
     Dates: start: 20081103, end: 20081110

REACTIONS (4)
  - ACUTE RESPIRATORY FAILURE [None]
  - ASTHENIA [None]
  - DIARRHOEA [None]
  - HYPOTENSION [None]
